FAERS Safety Report 11607485 (Version 8)
Quarter: 2018Q4

REPORT INFORMATION
  Report Type: Spontaneous
  Country: US (occurrence: US)
  Receive Date: 20151007
  Receipt Date: 20181024
  Transmission Date: 20190204
  Serious: Yes (Hospitalization, Other)
  Sender: FDA-Public Use
  Company Number: US-DSJP-DSU-2015-130918

PATIENT

DRUGS (5)
  1. PANTOPRAZOLE SODIUM. [Concomitant]
     Active Substance: PANTOPRAZOLE SODIUM
     Indication: GASTROOESOPHAGEAL REFLUX DISEASE
     Dosage: 40 MG, QD
  2. BENICAR [Suspect]
     Active Substance: OLMESARTAN MEDOXOMIL
     Dosage: 20 MG, QD
     Route: 048
     Dates: end: 20150306
  3. LOVASTATIN. [Concomitant]
     Active Substance: LOVASTATIN
     Indication: BLOOD CHOLESTEROL
     Dosage: 10 MG, QD
  4. ASPIRIN                            /00002701/ [Concomitant]
     Active Substance: ASPIRIN
     Indication: PRODUCT USED FOR UNKNOWN INDICATION
     Dosage: 81 MG, QD
  5. BENICAR [Suspect]
     Active Substance: OLMESARTAN MEDOXOMIL
     Indication: HYPERTENSION
     Dosage: 40 MG, QD
     Route: 048
     Dates: start: 20110601, end: 20150306

REACTIONS (13)
  - Ileus [Recovering/Resolving]
  - Sprue-like enteropathy [Recovering/Resolving]
  - Inflammatory bowel disease [Recovered/Resolved]
  - Peptic ulcer [Recovered/Resolved]
  - Depression [Recovered/Resolved]
  - Metabolic acidosis [Recovering/Resolving]
  - Hepatic steatosis [Unknown]
  - Gastric ulcer [Recovered/Resolved]
  - Anxiety [Recovered/Resolved]
  - Duodenal ulcer [Unknown]
  - Irritable bowel syndrome [Recovered/Resolved]
  - Diverticulitis [Unknown]
  - Eating disorder [Unknown]

NARRATIVE: CASE EVENT DATE: 201406
